FAERS Safety Report 8188128-4 (Version None)
Quarter: 2012Q1

REPORT INFORMATION
  Report Type: 
  Country: None (occurrence: None)
  Receive Date: 20120306
  Receipt Date: 20120227
  Transmission Date: 20120608
  Serious: Yes (Other)
  Sender: FDA-Public Use
  Company Number: US-BAYER-2011-040485

PATIENT
  Age: 22 Year
  Sex: Female
  Weight: 62.132 kg

DRUGS (2)
  1. YASMIN [Suspect]
     Indication: CONTRACEPTION
     Dosage: UNK
     Dates: start: 20021021, end: 20070404
  2. YASMIN [Suspect]
     Indication: MIGRAINE PROPHYLAXIS

REACTIONS (10)
  - PARAESTHESIA [None]
  - HYPOAESTHESIA [None]
  - MUSCULAR WEAKNESS [None]
  - INJURY [None]
  - PAIN [None]
  - HYPOAESTHESIA ORAL [None]
  - GENERAL PHYSICAL HEALTH DETERIORATION [None]
  - EMOTIONAL DISTRESS [None]
  - ANXIETY [None]
  - CEREBRAL INFARCTION [None]
